FAERS Safety Report 25655175 (Version 1)
Quarter: 2025Q3

REPORT INFORMATION
  Report Type: Spontaneous
  Country: US (occurrence: None)
  Receive Date: 20250806
  Receipt Date: 20250806
  Transmission Date: 20251021
  Serious: Yes (Disabling)
  Sender: FDA-CTU
  Company Number: None

PATIENT
  Age: 62 Year
  Sex: Male
  Weight: 84.6 kg

DRUGS (1)
  1. WEGOVY [Suspect]
     Active Substance: SEMAGLUTIDE
     Indication: Glycosylated haemoglobin increased
     Dates: end: 20250124

REACTIONS (4)
  - Pain [None]
  - Sensitive skin [None]
  - Mobility decreased [None]
  - Rhabdomyolysis [None]

NARRATIVE: CASE EVENT DATE: 20250124
